FAERS Safety Report 15193253 (Version 7)
Quarter: 2020Q2

REPORT INFORMATION
  Report Type: Spontaneous
  Country: DE (occurrence: DE)
  Receive Date: 20180725
  Receipt Date: 20200423
  Transmission Date: 20200713
  Serious: Yes (Death, Life-Threatening, Hospitalization)
  Sender: FDA-Public Use
  Company Number: DE-DRREDDYS-GER/GER/18/0102212

PATIENT
  Age: 50 Year
  Sex: Female
  Weight: 66 kg

DRUGS (19)
  1. DOCETAXEL. [Suspect]
     Active Substance: DOCETAXEL
     Dosage: 60-75 MG/M2
     Route: 042
     Dates: start: 20161108
  2. HERCEPTIN [Suspect]
     Active Substance: TRASTUZUMAB
     Route: 042
     Dates: start: 20160108
  3. TRASTUZUMAB. [Suspect]
     Active Substance: TRASTUZUMAB
     Dosage: MOST RECENT DOSE ON 05/JUL/2017
     Route: 042
     Dates: start: 20141008, end: 20170827
  4. CLOPIDOGREL [Concomitant]
     Active Substance: CLOPIDOGREL BISULFATE
     Indication: PRODUCT USED FOR UNKNOWN INDICATION
     Route: 065
     Dates: start: 20170621, end: 20170827
  5. KEPPRA [Concomitant]
     Active Substance: LEVETIRACETAM
     Route: 065
     Dates: end: 20170827
  6. HERCEPTIN [Suspect]
     Active Substance: TRASTUZUMAB
     Route: 042
     Dates: start: 20140108
  7. ZOMETA [Suspect]
     Active Substance: ZOLEDRONIC ACID
     Indication: PRODUCT USED FOR UNKNOWN INDICATION
     Dosage: MOST RECENT DOSE ON 19/JUL/2017
     Route: 065
     Dates: start: 20170302, end: 20170827
  8. PANTOPRAZOLE [Concomitant]
     Active Substance: PANTOPRAZOLE
     Dates: end: 20170106
  9. KEPPRA [Concomitant]
     Active Substance: LEVETIRACETAM
     Dosage: LAST DOSE ON 06/JAN/2017
     Route: 048
     Dates: start: 2006, end: 20170106
  10. PERTUZUMAB. [Suspect]
     Active Substance: PERTUZUMAB
     Indication: BREAST CANCER
     Dosage: MOST RECENT DOSE ON 05/JUL/2017
     Route: 042
     Dates: start: 20161108, end: 20170705
  11. KEPPRA [Concomitant]
     Active Substance: LEVETIRACETAM
     Indication: EPILEPSY
     Dosage: LAST DOSE ON 06/JAN/2017 1 PRO TAG / PER DAY.
     Route: 048
     Dates: start: 20060630, end: 20170827
  12. ATORVASTATIN [Concomitant]
     Active Substance: ATORVASTATIN
     Indication: HYPERCHOLESTEROLAEMIA
     Dosage: 1 PRO TAG / PER DAY
     Route: 048
  13. HERCEPTIN [Suspect]
     Active Substance: TRASTUZUMAB
     Dosage: MOST RECENT DOSE ON 05/JUL/2017
     Route: 042
     Dates: start: 20161108, end: 20170827
  14. ASS LIGHT 100 [Concomitant]
     Indication: CEREBROVASCULAR ACCIDENT
     Dosage: LAST DOSE ON 06/JAN/2017
     Route: 065
     Dates: end: 20170106
  15. PERTUZUMAB. [Suspect]
     Active Substance: PERTUZUMAB
     Route: 042
  16. ATORVASTATIN [Concomitant]
     Active Substance: ATORVASTATIN
     Dosage: 1 PRO TAG / PER DAY
     Route: 048
     Dates: end: 20170827
  17. LETROZOLE. [Suspect]
     Active Substance: LETROZOLE
     Dosage: 2 , 5 MG. LAST DOSE PRIRO TO SAE ON 18-AUG-2017
     Route: 042
     Dates: start: 201405, end: 20170827
  18. TRASTUZUMAB. [Suspect]
     Active Substance: TRASTUZUMAB
     Indication: BREAST CANCER
     Dosage: MOST RECENT DOSE ON 05/JUL/2017
     Route: 042
     Dates: start: 20161108, end: 20170827
  19. PANTOPRAZOLE [Concomitant]
     Active Substance: PANTOPRAZOLE
     Indication: PRODUCT USED FOR UNKNOWN INDICATION
     Dosage: LAST DOSE ON 06/JAN/2017
     Route: 065
     Dates: start: 20170621, end: 20170827

REACTIONS (11)
  - Stomatitis [Not Recovered/Not Resolved]
  - Mucosal inflammation [Recovered/Resolved]
  - Febrile neutropenia [Not Recovered/Not Resolved]
  - Dysgeusia [Recovered/Resolved]
  - Fatigue [Recovered/Resolved]
  - Dysuria [Not Recovered/Not Resolved]
  - Neutropenia [Recovered/Resolved]
  - Cough [Recovered/Resolved]
  - Vertigo [Recovered/Resolved]
  - Epistaxis [Recovered/Resolved]
  - Diarrhoea [Recovered/Resolved]

NARRATIVE: CASE EVENT DATE: 20161115
